FAERS Safety Report 7483542-4 (Version None)
Quarter: 2011Q2

REPORT INFORMATION
  Report Type: 
  Country: None (occurrence: None)
  Receive Date: 20110509
  Receipt Date: 20110426
  Transmission Date: 20111010
  Serious: Yes (Hospitalization, Other)
  Sender: FDA-Public Use
  Company Number: 1000020424

PATIENT
  Age: 33 Year
  Sex: Female

DRUGS (3)
  1. ALCOHOL (ETHANOL) [Suspect]
  2. LITHIUM CARBONATE [Suspect]
     Dosage: (ONCE),ORAL
     Route: 048
  3. LEXAPRO [Suspect]
     Dosage: (ONCE),ORAL
     Route: 048

REACTIONS (7)
  - ELECTROCARDIOGRAM QT PROLONGED [None]
  - LETHARGY [None]
  - MENTAL STATUS CHANGES [None]
  - AGGRESSION [None]
  - SINUS BRADYCARDIA [None]
  - MULTIPLE DRUG OVERDOSE INTENTIONAL [None]
  - SUICIDE ATTEMPT [None]
